FAERS Safety Report 9815632 (Version 3)
Quarter: 2014Q1

REPORT INFORMATION
  Report Type: Report from Study
  Country: PL (occurrence: PL)
  Receive Date: 20140114
  Receipt Date: 20140311
  Transmission Date: 20141002
  Serious: Yes (Hospitalization)
  Sender: FDA-Public Use
  Company Number: PL-PFIZER INC-2014005799

PATIENT
  Age: 76 Year
  Sex: Female
  Weight: 41.5 kg

DRUGS (6)
  1. TOFACITINIB CITRATE [Suspect]
     Indication: RHEUMATOID ARTHRITIS
     Dosage: 5 MG, 2X/DAY
     Route: 048
     Dates: start: 20100301, end: 20131223
  2. POLPRAZOL [Concomitant]
     Indication: GASTRITIS PROPHYLAXIS
     Dosage: UNK
     Dates: start: 2004
  3. PREDUCTAL [Concomitant]
     Indication: CARDIAC FAILURE
     Dosage: UNK
     Dates: start: 20100416
  4. PABI-NAPROXEN [Concomitant]
     Indication: RHEUMATOID ARTHRITIS
     Dosage: UNK
     Dates: start: 201205
  5. VIGANTOLETTEN [Concomitant]
     Indication: OSTEOPOROSIS PROPHYLAXIS
     Dosage: UNK
     Dates: start: 20130820
  6. HYDROCHLOROTHIAZIDE [Concomitant]
     Indication: LOCALISED OEDEMA
     Dosage: UNK
     Dates: start: 20130620

REACTIONS (1)
  - Bronchitis [Recovered/Resolved]
